FAERS Safety Report 10661391 (Version 1)
Quarter: 2014Q4

REPORT INFORMATION
  Report Type: Spontaneous
  Country: FR (occurrence: FR)
  Receive Date: 20141218
  Receipt Date: 20141218
  Transmission Date: 20150529
  Serious: Yes (Hospitalization)
  Sender: FDA-Public Use
  Company Number: FR-TEVA-528845ISR

PATIENT
  Age: 24 Year
  Sex: Female

DRUGS (11)
  1. CLAMOXYL [Concomitant]
     Active Substance: AMOXICILLIN\CLAVULANIC ACID
     Dosage: 1500 MILLIGRAM DAILY;
  2. SPASFON [Concomitant]
     Active Substance: PHLOROGLUCINOL
     Dosage: 4 DOSAGE FORMS DAILY; USUAL TREATMENT
  3. PROGRAF [Suspect]
     Active Substance: TACROLIMUS\TACROLIMUS ANHYDROUS
     Dosage: 2 MILLIGRAM DAILY; RESTARTED DUE TO EVEROLIMUS INEFFECTIVENESS
     Route: 048
     Dates: start: 200808
  4. LEDERFOLINE [Concomitant]
     Active Substance: LEUCOVORIN CALCIUM
     Dosage: 15 MILLIGRAM DAILY; USUAL TREATMENT
  5. INIPOMP [Concomitant]
     Active Substance: PANTOPRAZOLE SODIUM
     Dosage: 20 MILLIGRAM DAILY; USUAL TREATMENT
  6. STILNOX [Concomitant]
     Active Substance: ZOLPIDEM TARTRATE
     Dosage: 10 MILLIGRAM DAILY; USUAL TREATMENT
  7. VITAMINE B12 [Concomitant]
     Dosage: 1 DOSAGE FORMS DAILY; USUAL TREATMENT
  8. IMODIUM [Concomitant]
     Active Substance: LOPERAMIDE HYDROCHLORIDE
     Dosage: USUAL TREATMENT
  9. LEXOMIL [Concomitant]
     Active Substance: BROMAZEPAM
     Indication: ANXIETY
     Dosage: USUAL TREATMENT
  10. ACTIQ [Suspect]
     Active Substance: FENTANYL CITRATE
     Indication: PRODUCT USED FOR UNKNOWN INDICATION
     Dosage: 400 MICROGRAM DAILY;
     Route: 002
     Dates: start: 2006
  11. IMUREL [Concomitant]
     Active Substance: AZATHIOPRINE SODIUM
     Dosage: 50 MILLIGRAM DAILY; USUAL TREATMENT

REACTIONS (3)
  - Asthenia [None]
  - Headache [None]
  - Seizure [Recovered/Resolved]

NARRATIVE: CASE EVENT DATE: 20090324
